FAERS Safety Report 5708995-0 (Version None)
Quarter: 2008Q2

REPORT INFORMATION
  Report Type: 
  Country: None (occurrence: None)
  Receive Date: 20080416
  Receipt Date: 20080416
  Transmission Date: 20081010
  Serious: Yes (Other)
  Sender: FDA-Public Use
  Company Number: None

PATIENT
  Age: 25 Month
  Sex: Female

DRUGS (1)
  1. SYNAGIS [Suspect]

REACTIONS (1)
  - RASH PAPULAR [None]
